FAERS Safety Report 16197396 (Version 1)
Quarter: 2019Q2

REPORT INFORMATION
  Report Type: Spontaneous
  Country: US (occurrence: US)
  Receive Date: 20190413
  Receipt Date: 20190413
  Transmission Date: 20190711
  Serious: Yes (Life-Threatening, Hospitalization, Disabling, Other)
  Sender: FDA-Public Use
  Company Number: None

PATIENT
  Age: 54 Year
  Sex: Female
  Weight: 60.75 kg

DRUGS (4)
  1. TERBINAFINE HCL 250 MG TABLET [Suspect]
     Active Substance: TERBINAFINE HYDROCHLORIDE
     Indication: ONYCHOMYCOSIS
     Dosage: ?          QUANTITY:1 TABLET(S);?
     Route: 048
     Dates: start: 20190324, end: 20190331
  2. CALCIUM WITH D3 [Concomitant]
  3. MULTI VITAMIN [Concomitant]
     Active Substance: VITAMINS
  4. ATORCASTATIN 10 MG. TABLET [Concomitant]

REACTIONS (4)
  - Constipation [None]
  - Pancreatitis [None]
  - Hiccups [None]
  - Product substitution issue [None]

NARRATIVE: CASE EVENT DATE: 20190402
